FAERS Safety Report 6753623-9 (Version None)
Quarter: 2010Q2

REPORT INFORMATION
  Report Type: 
  Country: None (occurrence: None)
  Receive Date: 20100603
  Receipt Date: 20100526
  Transmission Date: 20101027
  Serious: Yes (Death, Hospitalization)
  Sender: FDA-Public Use
  Company Number: US-ROCHE-699441

PATIENT
  Sex: Female
  Weight: 55.8 kg

DRUGS (1)
  1. CAPECITABINE [Suspect]
     Indication: BREAST CANCER
     Dosage: DOSE: 2 TABLETS, TWICE DAILY
     Route: 048
     Dates: start: 20091120, end: 20100408

REACTIONS (2)
  - DEATH [None]
  - EFFUSION [None]
